FAERS Safety Report 5008277-9 (Version None)
Quarter: 2006Q2

REPORT INFORMATION
  Report Type: 
  Country: None (occurrence: None)
  Receive Date: 20060523
  Receipt Date: 20051121
  Transmission Date: 20061013
  Serious: No
  Sender: FDA-Public Use
  Company Number: US2005-10866

PATIENT
  Age: 30 Year
  Sex: Male

DRUGS (6)
  1. FLOLAN [Suspect]
     Indication: PULMONARY HYPERTENSION
     Route: 042
     Dates: start: 20030101
  2. TRACLEER [Suspect]
     Indication: PULMONARY HYPERTENSION
     Dosage: 62.5MG TWICE PER DAY
     Route: 048
     Dates: start: 20050825, end: 20050926
  3. TRACLEER [Suspect]
     Dosage: 125MG TWICE PER DAY
     Route: 048
     Dates: start: 20050927, end: 20051012
  4. COUMADIN [Concomitant]
  5. LASIX [Concomitant]
  6. POTASSIUM [Concomitant]

REACTIONS (1)
  - HEADACHE [None]
